FAERS Safety Report 5374702-7 (Version None)
Quarter: 2007Q2

REPORT INFORMATION
  Report Type: 
  Country: None (occurrence: None)
  Receive Date: 20070629
  Receipt Date: 20070618
  Transmission Date: 20071010
  Serious: Yes (Other)
  Sender: FDA-Public Use
  Company Number: US-JNJFOC-20070603934

PATIENT
  Age: 16 Year
  Sex: Male

DRUGS (3)
  1. MINOCYCLINE HCL [Suspect]
     Indication: ACNE
     Route: 048
  2. METHIMAZOLE [Concomitant]
     Indication: DRUG USE FOR UNKNOWN INDICATION
     Route: 048
  3. ATENOLOL [Concomitant]
     Indication: DRUG USE FOR UNKNOWN INDICATION
     Route: 048

REACTIONS (7)
  - ARTHRALGIA [None]
  - GOITRE [None]
  - HYPERTHYROIDISM [None]
  - JOINT SWELLING [None]
  - LUPUS-LIKE SYNDROME [None]
  - TACHYCARDIA [None]
  - TREMOR [None]
